FAERS Safety Report 7986572-9 (Version None)
Quarter: 2011Q4

REPORT INFORMATION
  Report Type: 
  Country: None (occurrence: None)
  Receive Date: 20111216
  Receipt Date: 20110726
  Transmission Date: 20120403
  Serious: Yes (Other)
  Sender: FDA-Public Use
  Company Number: US-BRISTOL-MYERS SQUIBB COMPANY-15925548

PATIENT
  Age: 56 Year
  Sex: Female

DRUGS (3)
  1. ABILIFY [Suspect]
     Dosage: DOSAGE: 1TAB/1DAY
     Dates: start: 20110301
  2. CYMBALTA [Concomitant]
  3. LYRICA [Concomitant]

REACTIONS (1)
  - URTICARIA [None]
